FAERS Safety Report 21027417 (Version 1)
Quarter: 2022Q2

REPORT INFORMATION
  Report Type: Spontaneous
  Country: US (occurrence: None)
  Receive Date: 20220629
  Receipt Date: 20220629
  Transmission Date: 20220721
  Serious: Yes (Disabling)
  Sender: FDA-Public Use
  Company Number: None

PATIENT
  Age: 62 Year
  Sex: Female
  Weight: 69.75 kg

DRUGS (9)
  1. LEVOFLOXACIN [Suspect]
     Active Substance: LEVOFLOXACIN
     Indication: Ear infection
     Dosage: FREQUENCY : DAILY;?
     Route: 048
     Dates: start: 20220527, end: 20220527
  2. SOTALOL [Concomitant]
     Active Substance: SOTALOL
  3. VITAMIN C [Concomitant]
     Active Substance: ASCORBIC ACID
  4. VITAMIN D NOS [Concomitant]
     Active Substance: VITAMIN D NOS
  5. ZINC [Concomitant]
     Active Substance: ZINC
  6. VITAMIN B-COMPLEX [Concomitant]
     Active Substance: DEXPANTHENOL\NIACINAMIDE\PYRIDOXINE HYDROCHLORIDE\RIBOFLAVIN 5^-PHOSPHATE SODIUM\THIAMINE HYDROCHLOR
  7. MAGNESIUM [Concomitant]
     Active Substance: MAGNESIUM
  8. ASPIRIN [Concomitant]
     Active Substance: ASPIRIN
  9. CRANBERRY [Concomitant]
     Active Substance: CRANBERRY

REACTIONS (6)
  - Vertigo [None]
  - Nausea [None]
  - Loss of consciousness [None]
  - Gait disturbance [None]
  - Feeling drunk [None]
  - Loss of personal independence in daily activities [None]

NARRATIVE: CASE EVENT DATE: 20220527
